FAERS Safety Report 7406863-X (Version None)
Quarter: 2011Q2

REPORT INFORMATION
  Report Type: 
  Country: None (occurrence: None)
  Receive Date: 20110411
  Receipt Date: 20110401
  Transmission Date: 20111010
  Serious: Yes (Hospitalization)
  Sender: FDA-Public Use
  Company Number: DE-AMGEN-DEUSP2011017589

PATIENT
  Sex: Male

DRUGS (2)
  1. ACE INHIBITOR NOS [Concomitant]
  2. ARANESP [Suspect]
     Indication: RENAL FAILURE CHRONIC
     Dosage: UNK A?G, UNK
     Dates: start: 20100101

REACTIONS (3)
  - HYPERTENSIVE CRISIS [None]
  - HAEMOGLOBIN DECREASED [None]
  - THERAPEUTIC RESPONSE DECREASED [None]
